FAERS Safety Report 23041772 (Version 1)
Quarter: 2023Q4

REPORT INFORMATION
  Report Type: Spontaneous
  Country: US (occurrence: US)
  Receive Date: 20231007
  Receipt Date: 20231007
  Transmission Date: 20240110
  Serious: Yes (Hospitalization)
  Sender: FDA-Public Use
  Company Number: US-Fresenius Medical Care Renal Therapies Group-FMC-2310-001089

PATIENT
  Age: 60 Year
  Sex: Male
  Weight: 85.5 kg

DRUGS (5)
  1. DELFLEX WITH DEXTROSE 1.5% LOW MAGNESIUM LOW CALCIUM [Suspect]
     Active Substance: CALCIUM CHLORIDE\DEXTROSE\MAGNESIUM CHLORIDE\SODIUM CHLORIDE\SODIUM LACTATE
     Indication: End stage renal disease
     Dosage: 7 DAYS-A-WEEK, EXCHANGES = 5, FILL VOLUME = 2300 ML, DWELL TIME = 2.0 HOURS, LAST FILL = 1500 ML (IC
     Route: 033
  2. DELFLEX WITH DEXTROSE 2.5% LOW MAGNESIUM LOW CALCIUM [Suspect]
     Active Substance: CALCIUM CHLORIDE\DEXTROSE\MAGNESIUM CHLORIDE\SODIUM CHLORIDE\SODIUM LACTATE
     Indication: End stage renal disease
     Dosage: 7 DAYS-A-WEEK, EXCHANGES = 5, FILL VOLUME = 2300 ML, DWELL TIME = 2.0 HOURS, LAST FILL = 1500 ML (IC
     Route: 033
  3. DELFLEX WITH DEXTROSE 4.25% LOW MAGNESIUM LOW CALCIUM [Suspect]
     Active Substance: CALCIUM CHLORIDE\DEXTROSE\MAGNESIUM CHLORIDE\SODIUM CHLORIDE\SODIUM LACTATE
     Indication: End stage renal disease
     Dosage: 7 DAYS-A-WEEK, EXCHANGES = 5, FILL VOLUME = 2300 ML, DWELL TIME = 2.0 HOURS, LAST FILL = 1500 ML (IC
     Route: 033
  4. ICODEXTRIN [Suspect]
     Active Substance: ICODEXTRIN
  5. CLONIDINE [Suspect]
     Active Substance: CLONIDINE
     Indication: Hypertension

REACTIONS (2)
  - Pneumonia [Recovered/Resolved]
  - Hypotension [Recovered/Resolved]

NARRATIVE: CASE EVENT DATE: 20230920
